FAERS Safety Report 10624788 (Version 2)
Quarter: 2014Q4

REPORT INFORMATION
  Report Type: Spontaneous
  Country: US (occurrence: US)
  Receive Date: 20141204
  Receipt Date: 20141226
  Transmission Date: 20150529
  Serious: Yes (Hospitalization, Other)
  Sender: FDA-Public Use
  Company Number: US-009507513-1412USA000724

PATIENT
  Sex: Male

DRUGS (1)
  1. KEYTRUDA [Suspect]
     Active Substance: PEMBROLIZUMAB
     Dosage: UNK
     Dates: start: 201403, end: 201409

REACTIONS (3)
  - Neoplasm [Recovering/Resolving]
  - Adverse event [Unknown]
  - Infection [Unknown]

NARRATIVE: CASE EVENT DATE: 2014
